FAERS Safety Report 12909278 (Version 1)
Quarter: 2016Q4

REPORT INFORMATION
  Report Type: Spontaneous
  Country: RO (occurrence: RO)
  Receive Date: 20161104
  Receipt Date: 20161104
  Transmission Date: 20170207
  Serious: Yes (Disabling, Other)
  Sender: FDA-Public Use
  Company Number: RO-ROCHE-1849857

PATIENT
  Sex: Female
  Weight: 98 kg

DRUGS (1)
  1. HERCEPTIN [Suspect]
     Active Substance: TRASTUZUMAB
     Indication: BREAST CANCER
     Route: 058
     Dates: start: 201605

REACTIONS (2)
  - Breast cancer [Not Recovered/Not Resolved]
  - Cartilage injury [Not Recovered/Not Resolved]
